FAERS Safety Report 18908779 (Version 2)
Quarter: 2021Q4

REPORT INFORMATION
  Report Type: Spontaneous
  Country: GB (occurrence: GB)
  Receive Date: 20210218
  Receipt Date: 20211103
  Transmission Date: 20220303
  Serious: Yes (Hospitalization, Other)
  Sender: FDA-Public Use
  Company Number: GB-MHRA-EYC 00239573

PATIENT
  Age: 79 Year
  Sex: Female

DRUGS (2)
  1. TEICOPLANIN [Suspect]
     Active Substance: TEICOPLANIN
     Indication: Antibiotic prophylaxis
     Dosage: 600 MILLIGRAM, UNK
     Route: 042
     Dates: start: 20200225, end: 20200225
  2. VECURONIUM [Suspect]
     Active Substance: VECURONIUM BROMIDE
     Indication: Anaesthesia
     Dosage: UNK
     Route: 042

REACTIONS (3)
  - Adverse drug reaction [Recovered/Resolved]
  - Anaphylactic reaction [Recovered/Resolved]
  - Sensitive skin [Recovered/Resolved]
